FAERS Safety Report 13497907 (Version 1)
Quarter: 2017Q2

REPORT INFORMATION
  Report Type: Report from Study
  Country: FI (occurrence: FI)
  Receive Date: 20170501
  Receipt Date: 20170501
  Transmission Date: 20170830
  Serious: Yes (Other)
  Sender: FDA-Public Use
  Company Number: FI-ROCHE-1924874

PATIENT

DRUGS (10)
  1. NITRAZEPAM [Suspect]
     Active Substance: NITRAZEPAM
     Indication: DEMENTIA ALZHEIMER^S TYPE
     Route: 065
  2. CLOBAZAM [Suspect]
     Active Substance: CLOBAZAM
     Indication: DEMENTIA ALZHEIMER^S TYPE
     Route: 065
  3. ZOPICLONE [Suspect]
     Active Substance: ZOPICLONE
     Indication: DEMENTIA ALZHEIMER^S TYPE
     Route: 065
  4. ZOLPIDEM [Suspect]
     Active Substance: ZOLPIDEM\ZOLPIDEM TARTRATE
     Indication: DEMENTIA ALZHEIMER^S TYPE
     Route: 065
  5. CHLORDIAZEPOXIDE. [Suspect]
     Active Substance: CHLORDIAZEPOXIDE
     Indication: DEMENTIA ALZHEIMER^S TYPE
     Route: 065
  6. DIAZEPAM. [Suspect]
     Active Substance: DIAZEPAM
     Indication: DEMENTIA ALZHEIMER^S TYPE
     Route: 065
  7. TEMAZEPAM. [Suspect]
     Active Substance: TEMAZEPAM
     Indication: DEMENTIA ALZHEIMER^S TYPE
     Route: 065
  8. ALPRAZOLAM. [Suspect]
     Active Substance: ALPRAZOLAM
     Indication: DEMENTIA ALZHEIMER^S TYPE
     Route: 065
  9. LORAZEPAM. [Suspect]
     Active Substance: LORAZEPAM
     Indication: DEMENTIA ALZHEIMER^S TYPE
     Route: 065
  10. OXAZEPAM. [Suspect]
     Active Substance: OXAZEPAM
     Indication: DEMENTIA ALZHEIMER^S TYPE
     Route: 065

REACTIONS (2)
  - Ischaemic stroke [Unknown]
  - Haemorrhagic stroke [Unknown]
